FAERS Safety Report 12541071 (Version 2)
Quarter: 2016Q3

REPORT INFORMATION
  Report Type: Spontaneous
  Country: JP (occurrence: JP)
  Receive Date: 20160708
  Receipt Date: 20160713
  Transmission Date: 20161109
  Serious: Yes (Death, Other)
  Sender: FDA-Public Use
  Company Number: JP-JNJFOC-20160700863

PATIENT
  Age: 84 Year
  Sex: Female

DRUGS (2)
  1. SIMPONI [Suspect]
     Active Substance: GOLIMUMAB
     Indication: RHEUMATOID ARTHRITIS
     Route: 058
     Dates: start: 20150515, end: 20160513
  2. METHOTREXATE. [Suspect]
     Active Substance: METHOTREXATE
     Indication: RHEUMATOID ARTHRITIS
     Route: 065
     Dates: start: 20140523, end: 20160513

REACTIONS (4)
  - Balance disorder [Unknown]
  - Lymphoma [Fatal]
  - Brain neoplasm malignant [Unknown]
  - Fall [Unknown]

NARRATIVE: CASE EVENT DATE: 2016
